FAERS Safety Report 7400749-2 (Version None)
Quarter: 2011Q2

REPORT INFORMATION
  Report Type: 
  Country: None (occurrence: None)
  Receive Date: 20110407
  Receipt Date: 20110331
  Transmission Date: 20111010
  Serious: Yes (Other)
  Sender: FDA-Public Use
  Company Number: A0920878A

PATIENT
  Sex: Female

DRUGS (7)
  1. URISPAS [Concomitant]
  2. DIPENTUM [Concomitant]
  3. VITAMIN D [Concomitant]
  4. MULTI-VITAMIN [Concomitant]
  5. ACETAMINOPHEN [Concomitant]
  6. ADVAIR HFA [Suspect]
     Indication: ASTHMA
     Dosage: 1PUFF PER DAY
     Route: 055
  7. MOTRIN [Concomitant]

REACTIONS (2)
  - OSTEOPENIA [None]
  - CATARACT [None]
